FAERS Safety Report 22217570 (Version 1)
Quarter: 2023Q2

REPORT INFORMATION
  Report Type: Spontaneous
  Country: US (occurrence: None)
  Receive Date: 20230414
  Receipt Date: 20230414
  Transmission Date: 20230722
  Serious: No
  Sender: FDA-Public Use
  Company Number: None

PATIENT
  Sex: Male

DRUGS (1)
  1. ABIRATERONE [Suspect]
     Active Substance: ABIRATERONE
     Dosage: FREQUENCY : DAILY;?
     Route: 048

REACTIONS (13)
  - Hot flush [None]
  - Muscle spasms [None]
  - Muscle spasms [None]
  - Blood albumin decreased [None]
  - Metastases to liver [None]
  - Metastases to bone [None]
  - Malignant neoplasm progression [None]
  - Tremor [None]
  - Fatigue [None]
  - Dyspnoea [None]
  - Pyrexia [None]
  - Pneumonia bacterial [None]
  - Lung carcinoma cell type unspecified stage IV [None]
